FAERS Safety Report 7608693-2 (Version None)
Quarter: 2011Q3

REPORT INFORMATION
  Report Type: 
  Country: None (occurrence: None)
  Receive Date: 20110713
  Receipt Date: 20110713
  Transmission Date: 20111222
  Serious: Yes (Other)
  Sender: FDA-Public Use
  Company Number: None

PATIENT
  Age: 34 Year
  Sex: Male
  Weight: 79.3795 kg

DRUGS (1)
  1. PROPECIA [Suspect]
     Indication: ALOPECIA
     Dosage: 1MG DAILY PO
     Route: 048
     Dates: start: 20100530, end: 20100930

REACTIONS (29)
  - ARTHRALGIA [None]
  - EYE PAIN [None]
  - ANHEDONIA [None]
  - FAMILY STRESS [None]
  - PANIC ATTACK [None]
  - MENTAL DISORDER [None]
  - SUICIDAL IDEATION [None]
  - TESTICULAR PAIN [None]
  - ERECTILE DYSFUNCTION [None]
  - EMOTIONAL DISORDER [None]
  - SOCIAL AVOIDANT BEHAVIOUR [None]
  - GENITAL HYPOAESTHESIA [None]
  - GYNAECOMASTIA [None]
  - PROSTATIC PAIN [None]
  - STRESS [None]
  - MUSCLE ATROPHY [None]
  - APATHY [None]
  - HYPOAESTHESIA [None]
  - EJACULATION DISORDER [None]
  - ANXIETY [None]
  - PENILE CURVATURE [None]
  - TESTICULAR DISORDER [None]
  - SEXUAL DYSFUNCTION [None]
  - FEELING ABNORMAL [None]
  - DYSARTHRIA [None]
  - PENILE PAIN [None]
  - DEPRESSION [None]
  - DISTURBANCE IN ATTENTION [None]
  - ENDOCRINE DISORDER [None]
